FAERS Safety Report 9947794 (Version 1)
Quarter: 2014Q1

REPORT INFORMATION
  Report Type: Report from Study
  Country: US (occurrence: US)
  Receive Date: 20140303
  Receipt Date: 20140303
  Transmission Date: 20141002
  Serious: No
  Sender: FDA-Public Use
  Company Number: US-ABBVIE-13P-163-1057433-00

PATIENT
  Age: 57 Year
  Sex: Female

DRUGS (6)
  1. HUMIRA [Suspect]
     Indication: CROHN^S DISEASE
     Route: 058
     Dates: start: 20110405
  2. TUMS [Concomitant]
     Indication: OSTEOPENIA
     Dosage: 2 TABS DAILY
  3. CHOLECALCIFEROL [Concomitant]
     Indication: VITAMIN D ABNORMAL
     Dosage: 3 DROPS UNDER TONGUE
  4. LISINOPRIL [Concomitant]
     Indication: BLOOD PRESSURE
     Dosage: 20 MG DAILY
  5. MULTIVITAMIN [Concomitant]
     Indication: PRODUCT USED FOR UNKNOWN INDICATION
     Dosage: 1 DAILY
  6. EVISTA [Concomitant]
     Indication: OSTEOPENIA
     Dosage: 60 MG DAILY

REACTIONS (1)
  - Injection site haemorrhage [Recovered/Resolved]
